FAERS Safety Report 6528583-6 (Version None)
Quarter: 2010Q1

REPORT INFORMATION
  Report Type: 
  Country: None (occurrence: None)
  Receive Date: 20100105
  Receipt Date: 20100105
  Transmission Date: 20100710
  Serious: Yes (Life-Threatening, Other)
  Sender: FDA-Public Use
  Company Number: None

PATIENT
  Age: 28 Year
  Sex: Female
  Weight: 68.0396 kg

DRUGS (2)
  1. YAZ [Suspect]
     Indication: CONTRACEPTION
     Dosage: 1 PILL EVERY DAY PO
     Route: 048
     Dates: start: 20090101, end: 20091115
  2. YAZ [Suspect]
     Indication: MENSTRUAL CYCLE MANAGEMENT
     Dosage: 1 PILL EVERY DAY PO
     Route: 048
     Dates: start: 20090101, end: 20091115

REACTIONS (8)
  - DEPRESSION [None]
  - DYSMENORRHOEA [None]
  - HEADACHE [None]
  - HEART RATE IRREGULAR [None]
  - HYPERTENSION [None]
  - MENORRHAGIA [None]
  - MOOD SWINGS [None]
  - SUICIDAL IDEATION [None]
